FAERS Safety Report 15932798 (Version 2)
Quarter: 2019Q1

REPORT INFORMATION
  Report Type: Spontaneous
  Country: US (occurrence: US)
  Receive Date: 20190207
  Receipt Date: 20190221
  Transmission Date: 20190417
  Serious: No
  Sender: FDA-Public Use
  Company Number: US-009507513-1901USA011373

PATIENT
  Age: 79 Year
  Sex: Female

DRUGS (1)
  1. ASMANEX [Suspect]
     Active Substance: MOMETASONE FUROATE
     Dosage: 1 PUFF PER DAY
     Route: 055
     Dates: start: 20190126

REACTIONS (6)
  - Irritability [Unknown]
  - Incorrect dose administered [Unknown]
  - Circumstance or information capable of leading to medication error [Unknown]
  - Product quality issue [Unknown]
  - Stress [Unknown]
  - Device difficult to use [Unknown]

NARRATIVE: CASE EVENT DATE: 201901
